FAERS Safety Report 6574411-2 (Version None)
Quarter: 2010Q1

REPORT INFORMATION
  Report Type: 
  Country: None (occurrence: None)
  Receive Date: 20100209
  Receipt Date: 20100201
  Transmission Date: 20100710
  Serious: Yes (Hospitalization)
  Sender: FDA-Public Use
  Company Number: US-BIOGENIDEC-2010BI003656

PATIENT
  Age: 65 Year
  Sex: Female

DRUGS (3)
  1. AVONEX [Suspect]
     Indication: MULTIPLE SCLEROSIS
     Route: 030
     Dates: start: 20031202, end: 20050307
  2. AVONEX [Suspect]
     Route: 030
     Dates: start: 20060817, end: 20090201
  3. AVONEX [Suspect]
     Route: 030
     Dates: start: 20090401

REACTIONS (4)
  - NEPHROLITHIASIS [None]
  - NEPHROSTOMY TUBE PLACEMENT [None]
  - PRURITUS GENERALISED [None]
  - RASH [None]
